FAERS Safety Report 24928836 (Version 1)
Quarter: 2025Q1

REPORT INFORMATION
  Report Type: Spontaneous
  Country: US (occurrence: None)
  Receive Date: 20250204
  Receipt Date: 20250204
  Transmission Date: 20250408
  Serious: Yes (Life-Threatening)
  Sender: FDA-CTU
  Company Number: None

PATIENT
  Age: 65 Year
  Sex: Female
  Weight: 95 kg

DRUGS (1)
  1. PROTAMINE SULFATE [Suspect]
     Active Substance: PROTAMINE SULFATE
     Indication: Vascular operation
     Route: 042
     Dates: start: 20241217, end: 20241217

REACTIONS (1)
  - Hypotension [None]

NARRATIVE: CASE EVENT DATE: 20241217
